FAERS Safety Report 8507883 (Version 2)
Quarter: 2012Q4

REPORT INFORMATION
  Report Type: 
  Country: US (occurrence: US)
  Receive Date: 20120412
  Receipt Date: 20121011
  Transmission Date: 20130627
  Serious: No
  Sender: FDA-Public Use
  Company Number: US-ASTRAZENECA-2011SE66750

PATIENT
  Age: 42 Year
  Sex: Male

DRUGS (5)
  1. NEXIUM [Suspect]
     Route: 048
  2. NEXIUM [Suspect]
     Route: 048
  3. NEXIUM [Suspect]
     Route: 048
  4. SEROQUEL [Suspect]
     Indication: BIPOLAR DISORDER
     Route: 048
  5. SEROQUEL [Suspect]
     Indication: SLEEP DISORDER
     Route: 048

REACTIONS (7)
  - Withdrawal syndrome [Unknown]
  - Musculoskeletal discomfort [Unknown]
  - Retching [Unknown]
  - Abdominal pain upper [Unknown]
  - Drug dose omission [Unknown]
  - Incorrect drug dosage form administered [Unknown]
  - Off label use [Unknown]
